FAERS Safety Report 11580295 (Version 6)
Quarter: 2016Q4

REPORT INFORMATION
  Report Type: Spontaneous
  Country: DE (occurrence: DE)
  Receive Date: 20150930
  Receipt Date: 20161208
  Transmission Date: 20170206
  Serious: Yes (Other)
  Sender: FDA-Public Use
  Company Number: PHHY2015DE105522

PATIENT
  Age: 54 Year
  Sex: Male
  Weight: 73 kg

DRUGS (26)
  1. VIGABATRIN [Concomitant]
     Active Substance: VIGABATRIN
     Indication: SEIZURE
     Dosage: 1750 MG, QD
     Route: 065
     Dates: start: 199211, end: 199303
  2. RANITIDINE. [Suspect]
     Active Substance: RANITIDINE
     Indication: PRODUCT USED FOR UNKNOWN INDICATION
     Dosage: UNK
     Route: 065
  3. MYLEPSINUM [Suspect]
     Active Substance: PRIMIDONE
     Dosage: 250 MG, QD
     Route: 065
     Dates: start: 199211, end: 199303
  4. SODIUM VALPROATE [Concomitant]
     Active Substance: VALPROATE SODIUM
     Indication: PARTIAL SEIZURES
     Dosage: 1000 MG, QD
     Route: 065
     Dates: start: 198401, end: 198406
  5. SODIUM VALPROATE [Concomitant]
     Active Substance: VALPROATE SODIUM
     Dosage: 1200-1500 MG, QD
     Route: 065
     Dates: start: 198609, end: 199001
  6. CARBAMAZEPINE. [Suspect]
     Active Substance: CARBAMAZEPINE
     Dosage: 1100-1200 MG, QD
     Route: 065
     Dates: start: 198609, end: 199001
  7. MYLEPSINUM [Suspect]
     Active Substance: PRIMIDONE
     Dosage: 250-312.5 MG, QD
     Route: 065
     Dates: start: 199307, end: 199310
  8. PHENYTOIN. [Concomitant]
     Active Substance: PHENYTOIN
     Indication: SEIZURE
     Dosage: 200-300 MG, QD
     Route: 065
     Dates: start: 199201, end: 199205
  9. CARBAMAZEPINE. [Suspect]
     Active Substance: CARBAMAZEPINE
     Dosage: 1200-1400 MG, QD
     Route: 065
     Dates: start: 198607, end: 198608
  10. TEGRETAL [Interacting]
     Active Substance: CARBAMAZEPINE
     Dosage: 1800 MG, QD
     Route: 048
     Dates: start: 199101
  11. MYLEPSINUM [Suspect]
     Active Substance: PRIMIDONE
     Dosage: 250 MG, QD
     Route: 065
     Dates: start: 199303, end: 199307
  12. SODIUM VALPROATE [Concomitant]
     Active Substance: VALPROATE SODIUM
     Dosage: 900-1350 MG, QD
     Route: 065
     Dates: start: 199001, end: 199110
  13. VALPROAT [Concomitant]
     Active Substance: VALPROATE SODIUM
     Indication: SEIZURE
     Dosage: 1200-1800 MG, QD
     Route: 065
     Dates: start: 199101, end: 199111
  14. VIGABATRIN [Concomitant]
     Active Substance: VIGABATRIN
     Dosage: 1750 MG, QD
     Route: 065
     Dates: start: 199307, end: 199310
  15. VIGABATRIN [Concomitant]
     Active Substance: VIGABATRIN
     Dosage: 1000-1750 MG, QD
     Route: 065
     Dates: start: 199405, end: 199812
  16. CARBAMAZEPINE. [Suspect]
     Active Substance: CARBAMAZEPINE
     Indication: EPILEPSY
     Dosage: 600-1400 MG, QD
     Route: 065
     Dates: start: 198407, end: 198605
  17. TEGRETAL [Interacting]
     Active Substance: CARBAMAZEPINE
     Indication: EPILEPSY
     Dosage: 400 MG, 5QD
     Route: 048
     Dates: start: 199101
  18. MYLEPSINUM [Suspect]
     Active Substance: PRIMIDONE
     Indication: GENERALISED TONIC-CLONIC SEIZURE
     Dosage: UNK
     Route: 065
  19. MYLEPSINUM [Suspect]
     Active Substance: PRIMIDONE
     Indication: PARTIAL SEIZURES
     Dosage: 250-1000 MG, QD
     Route: 065
     Dates: start: 1981
  20. GABAPENTIN. [Suspect]
     Active Substance: GABAPENTIN
     Indication: PARTIAL SEIZURES
  21. VIGABATRIN [Concomitant]
     Active Substance: VIGABATRIN
     Dosage: 1750-2000 MG, QD
     Route: 065
     Dates: start: 199303, end: 199307
  22. GABAPENTIN. [Suspect]
     Active Substance: GABAPENTIN
     Indication: EPILEPSY
     Dosage: UNK
     Route: 065
     Dates: start: 199902, end: 20150830
  23. MYLEPSINUM [Suspect]
     Active Substance: PRIMIDONE
     Dosage: 312-500 MG, QD
     Route: 065
     Dates: start: 199101, end: 199111
  24. MYLEPSINUM [Suspect]
     Active Substance: PRIMIDONE
     Dosage: 250 MG, QD
     Route: 065
     Dates: start: 199310, end: 199405
  25. MYLEPSINUM [Suspect]
     Active Substance: PRIMIDONE
     Dosage: 250 MG, QD
     Route: 065
     Dates: start: 199405, end: 199812
  26. SODIUM VALPROATE [Concomitant]
     Active Substance: VALPROATE SODIUM
     Dosage: 900 MG, QD
     Route: 065
     Dates: start: 198407, end: 198608

REACTIONS (22)
  - Open angle glaucoma [Recovering/Resolving]
  - Oral pain [Unknown]
  - Sciatica [Unknown]
  - Drug interaction [Unknown]
  - Fatigue [Unknown]
  - Nausea [Unknown]
  - Drug prescribing error [Unknown]
  - Decreased appetite [Unknown]
  - Asthenia [Unknown]
  - Gingival disorder [Not Recovered/Not Resolved]
  - Visual field defect [Unknown]
  - Mental disorder [Unknown]
  - Bone metabolism disorder [Not Recovered/Not Resolved]
  - Tooth disorder [Not Recovered/Not Resolved]
  - Cervicobrachial syndrome [Unknown]
  - Gastric ulcer [Recovered/Resolved]
  - Jaw disorder [Unknown]
  - Gingival atrophy [Unknown]
  - Overdose [Unknown]
  - Musculoskeletal stiffness [Unknown]
  - Aggression [Unknown]
  - Arthralgia [Unknown]

NARRATIVE: CASE EVENT DATE: 1999
